FAERS Safety Report 24804757 (Version 1)
Quarter: 2025Q1

REPORT INFORMATION
  Report Type: Spontaneous
  Country: HR (occurrence: HR)
  Receive Date: 20250103
  Receipt Date: 20250103
  Transmission Date: 20250409
  Serious: Yes (Other)
  Sender: TEVA
  Company Number: None

PATIENT
  Age: 62 Year
  Sex: Male
  Weight: 64 kg

DRUGS (1)
  1. DUTASTERIDE\TAMSULOSIN HYDROCHLORIDE [Suspect]
     Active Substance: DUTASTERIDE\TAMSULOSIN HYDROCHLORIDE
     Indication: Prostatomegaly
     Dosage: 1 DF = 0.5 MG DUTASTERIDE + 0.4 MG TAMSULOSIN HYDROCHLORIDE
     Route: 048
     Dates: start: 20241005, end: 20241103

REACTIONS (4)
  - Oedema blister [Unknown]
  - Pain [Unknown]
  - Pruritus [Unknown]
  - Discomfort [Unknown]

NARRATIVE: CASE EVENT DATE: 20241202
